FAERS Safety Report 7176315-3 (Version None)
Quarter: 2010Q4

REPORT INFORMATION
  Report Type: 
  Country: None (occurrence: None)
  Receive Date: 20101220
  Receipt Date: 20101213
  Transmission Date: 20110411
  Serious: Yes (Other)
  Sender: FDA-Public Use
  Company Number: US-PFIZER INC-2010163040

PATIENT
  Sex: Male

DRUGS (3)
  1. CARDURA [Suspect]
     Indication: BLADDER SPASM
     Dosage: UNK
  2. CARDURA [Suspect]
     Dates: end: 20101101
  3. DOXAZOSIN MESYLATE [Suspect]
     Dosage: 4 MG TABLETS, UNK
     Dates: end: 20101101

REACTIONS (1)
  - PRESYNCOPE [None]
